FAERS Safety Report 5285734-1 (Version None)
Quarter: 2007Q1

REPORT INFORMATION
  Report Type: 
  Country: None (occurrence: None)
  Receive Date: 20070130
  Receipt Date: 20061113
  Transmission Date: 20070707
  Serious: Yes (Other)
  Sender: FDA-Public Use
  Company Number: 2006RL000417

PATIENT
  Age: 57 Year
  Sex: Male

DRUGS (6)
  1. PROPAFENONE HCL [Suspect]
     Indication: ATRIAL FIBRILLATION
     Dosage: 450 MG;QD;PO
     Route: 048
     Dates: start: 20060824, end: 20060905
  2. PROPAFENONE HCL [Suspect]
     Indication: DYSLIPIDAEMIA
     Dosage: 450 MG;QD;PO
     Route: 048
     Dates: start: 20060824, end: 20060905
  3. PROPAFENONE HCL [Suspect]
     Indication: ESSENTIAL HYPERTENSION
     Dosage: 450 MG;QD;PO
     Route: 048
     Dates: start: 20060824, end: 20060905
  4. LISINIPRILUM [Concomitant]
  5. AMLODIPINUM [Concomitant]
  6. FENOFIBRATUM [Concomitant]

REACTIONS (2)
  - DYSPEPSIA [None]
  - VOMITING [None]
